FAERS Safety Report 17223387 (Version 1)
Quarter: 2020Q1

REPORT INFORMATION
  Report Type: Spontaneous
  Country: CN (occurrence: CN)
  Receive Date: 20200102
  Receipt Date: 20200102
  Transmission Date: 20200409
  Serious: Yes (Hospitalization)
  Sender: FDA-Public Use
  Company Number: CN-ROCHE-2506245

PATIENT
  Age: 68 Year
  Sex: Female

DRUGS (2)
  1. AVASTIN [Suspect]
     Active Substance: BEVACIZUMAB
     Indication: LUNG ADENOCARCINOMA
     Route: 042
     Dates: start: 201911
  2. OSIMERTINIB. [Concomitant]
     Active Substance: OSIMERTINIB
     Route: 065

REACTIONS (5)
  - Memory impairment [Not Recovered/Not Resolved]
  - Asthenia [Not Recovered/Not Resolved]
  - Dysphagia [Not Recovered/Not Resolved]
  - Speech disorder [Not Recovered/Not Resolved]
  - Tremor [Not Recovered/Not Resolved]
